FAERS Safety Report 11719377 (Version 1)
Quarter: 2015Q4

REPORT INFORMATION
  Report Type: Spontaneous
  Country: GB (occurrence: GB)
  Receive Date: 20151110
  Receipt Date: 20151110
  Transmission Date: 20160304
  Serious: Yes (Other)
  Sender: FDA-Public Use
  Company Number: GB-MYLANLABS-2015M1038378

PATIENT

DRUGS (6)
  1. ADENOSINE. [Concomitant]
     Active Substance: ADENOSINE
     Indication: TACHYARRHYTHMIA
     Route: 065
  2. ESMOLOL [Suspect]
     Active Substance: ESMOLOL HYDROCHLORIDE
     Dosage: LOADING DOSE
  3. ESMOLOL [Suspect]
     Active Substance: ESMOLOL HYDROCHLORIDE
     Indication: TACHYARRHYTHMIA
     Dosage: 25 MCG/KG/MIN
     Route: 041
  4. AMIODARONE [Suspect]
     Active Substance: AMIODARONE
     Dosage: LOADING DOSE
  5. AMIODARONE [Suspect]
     Active Substance: AMIODARONE
     Indication: TACHYARRHYTHMIA
     Dosage: 10 MCG/KG/MIN FOR 10 HOURS
     Route: 041
  6. AMIODARONE [Suspect]
     Active Substance: AMIODARONE
     Dosage: SECOND LOADING DOSE

REACTIONS (2)
  - Bradycardia [Recovered/Resolved]
  - Cardiac output decreased [Recovered/Resolved]
